FAERS Safety Report 7493144-1 (Version None)
Quarter: 2011Q2

REPORT INFORMATION
  Report Type: 
  Country: None (occurrence: None)
  Receive Date: 20110520
  Receipt Date: 20110517
  Transmission Date: 20111010
  Serious: No
  Sender: FDA-Public Use
  Company Number: US-PFIZER INC-2011107081

PATIENT
  Sex: Female
  Weight: 63.492 kg

DRUGS (3)
  1. IBUPROFEN [Concomitant]
     Indication: ARTHRITIS
     Dosage: UNK
     Route: 048
  2. LIPITOR [Suspect]
     Indication: BLOOD CHOLESTEROL INCREASED
     Dosage: UNK
     Route: 048
     Dates: start: 20090101, end: 20090101
  3. CENTRUM CARDIO [Suspect]
     Indication: BLOOD CHOLESTEROL INCREASED
     Dosage: UNK, DAILY
     Route: 048
     Dates: start: 20090101

REACTIONS (2)
  - MYALGIA [None]
  - OCULAR HYPERAEMIA [None]
